FAERS Safety Report 18738399 (Version 2)
Quarter: 2021Q1

REPORT INFORMATION
  Report Type: Report from Study
  Country: US (occurrence: US)
  Receive Date: 20210113
  Receipt Date: 20210312
  Transmission Date: 20210419
  Serious: Yes (Hospitalization)
  Sender: FDA-Public Use
  Company Number: US-BIOGEN-2021BI00965807

PATIENT
  Age: 63 Year
  Sex: Female

DRUGS (1)
  1. TYSABRI [Suspect]
     Active Substance: NATALIZUMAB
     Indication: MULTIPLE SCLEROSIS
     Route: 042
     Dates: start: 20160122

REACTIONS (1)
  - Ankle fracture [Recovered/Resolved]

NARRATIVE: CASE EVENT DATE: 20200330
